FAERS Safety Report 8234099-1 (Version None)
Quarter: 2012Q1

REPORT INFORMATION
  Report Type: 
  Country: None (occurrence: None)
  Receive Date: 20120326
  Receipt Date: 20120326
  Transmission Date: 20120608
  Serious: Yes (Hospitalization)
  Sender: FDA-Public Use
  Company Number: None

PATIENT
  Age: 37 Year
  Sex: Female
  Weight: 65.317 kg

DRUGS (2)
  1. SEROQUEL [Suspect]
     Indication: BIPOLAR DISORDER
     Dosage: 50MG TWICE A DAY
     Dates: start: 20120316, end: 20120320
  2. SEROQUEL [Suspect]

REACTIONS (16)
  - RESTLESSNESS [None]
  - ABASIA [None]
  - DYSARTHRIA [None]
  - LETHARGY [None]
  - MYALGIA [None]
  - SOMNOLENCE [None]
  - WEIGHT INCREASED [None]
  - HEART RATE INCREASED [None]
  - ANXIETY [None]
  - FATIGUE [None]
  - THIRST [None]
  - DYSTONIA [None]
  - DYSKINESIA [None]
  - POLLAKIURIA [None]
  - DIZZINESS [None]
  - TREMOR [None]
